FAERS Safety Report 19465551 (Version 2)
Quarter: 2021Q3

REPORT INFORMATION
  Report Type: Spontaneous
  Country: US (occurrence: US)
  Receive Date: 20210624
  Receipt Date: 20210830
  Transmission Date: 20211014
  Serious: No
  Sender: FDA-Public Use
  Company Number: NVSC2021US133620

PATIENT

DRUGS (1)
  1. COSENTYX [Suspect]
     Active Substance: SECUKINUMAB
     Indication: PSORIASIS
     Dosage: 300 MG, UNKNOWN (BENEATH THE SKIN, USUALLY VIA INJECTION)
     Route: 058
     Dates: end: 202011

REACTIONS (2)
  - Gait inability [Unknown]
  - Psoriasis [Unknown]
